FAERS Safety Report 9863399 (Version 1)
Quarter: 2014Q1

REPORT INFORMATION
  Report Type: Spontaneous
  Country: US (occurrence: US)
  Receive Date: 20140203
  Receipt Date: 20140203
  Transmission Date: 20141002
  Serious: Yes (Other)
  Sender: FDA-Public Use
  Company Number: US-AMGEN-USASP2014006057

PATIENT
  Age: 72 Year
  Sex: Female

DRUGS (16)
  1. PROLIA [Suspect]
     Indication: OSTEOPENIA
     Dosage: UNK
     Route: 065
     Dates: start: 20131213
  2. CALCIUM [Concomitant]
  3. ADVICOR [Concomitant]
  4. IRON [Concomitant]
  5. FISH OIL [Concomitant]
  6. RESTASIS [Concomitant]
  7. TRIAMCINOLONE [Concomitant]
  8. METRONIDAZOLE [Concomitant]
  9. VITAMIN D                          /00107901/ [Concomitant]
  10. HYDROCHLOROTHIAZIDE [Concomitant]
  11. OMEPRAZOLE [Concomitant]
  12. AMLODIPINE [Concomitant]
  13. ASPIRIN [Concomitant]
     Dosage: 81 MG, UNK
  14. ALKA SELTZER                       /00002701/ [Concomitant]
  15. TUSSIN                             /00048001/ [Concomitant]
  16. TYLENOL                            /00020001/ [Concomitant]

REACTIONS (1)
  - Tooth abscess [Unknown]
